FAERS Safety Report 25546123 (Version 3)
Quarter: 2025Q3

REPORT INFORMATION
  Report Type: Spontaneous
  Country: US (occurrence: US)
  Receive Date: 20250712
  Receipt Date: 20250916
  Transmission Date: 20251020
  Serious: Yes (Hospitalization)
  Sender: SANOFI AVENTIS
  Company Number: US-SA-2025SA194820

PATIENT
  Age: 73 Year
  Sex: Male
  Weight: 90.249 kg

DRUGS (14)
  1. DUPIXENT [Suspect]
     Active Substance: DUPILUMAB
     Indication: Dermatitis atopic
     Dosage: 300 MG, QOW
     Route: 058
  2. LOSARTAN POTASSIUM [Concomitant]
     Active Substance: LOSARTAN POTASSIUM
  3. PLAVIX [Concomitant]
     Active Substance: CLOPIDOGREL BISULFATE
  4. LIVALO [Concomitant]
     Active Substance: PITAVASTATIN CALCIUM
  5. ALPHA LIPOIC ACID [Concomitant]
     Active Substance: .ALPHA.-LIPOIC ACID
  6. OMEPRAZOLE [Concomitant]
     Active Substance: OMEPRAZOLE
  7. VITAMIN E [Concomitant]
     Active Substance: .ALPHA.-TOCOPHEROL
  8. PITAVASTATIN CALCIUM [Concomitant]
     Active Substance: PITAVASTATIN CALCIUM
  9. VITAMINS NOS [Concomitant]
     Active Substance: VITAMINS
  10. MAGNESIUM [MAGNESIUM CHELATE] [Concomitant]
  11. JARDIANCE [Concomitant]
     Active Substance: EMPAGLIFLOZIN
     Dates: end: 20250826
  12. B12 ACTIVE [Concomitant]
  13. ASPIRIN [Concomitant]
     Active Substance: ASPIRIN
  14. METFORMIN [Concomitant]
     Active Substance: METFORMIN HYDROCHLORIDE
     Dates: start: 20250826

REACTIONS (6)
  - Carotid artery stent insertion [Unknown]
  - Injection site bruising [Unknown]
  - Injection site swelling [Recovered/Resolved]
  - Injection site pain [Unknown]
  - Accidental exposure to product [Unknown]
  - Exposure via skin contact [Unknown]

NARRATIVE: CASE EVENT DATE: 20250101
